FAERS Safety Report 6413289-4 (Version None)
Quarter: 2009Q4

REPORT INFORMATION
  Report Type: 
  Country: None (occurrence: None)
  Receive Date: 20091026
  Receipt Date: 20091016
  Transmission Date: 20100525
  Serious: Yes (Hospitalization)
  Sender: FDA-Public Use
  Company Number: BR-ROCHE-653404

PATIENT
  Sex: Female
  Weight: 45 kg

DRUGS (1)
  1. BONIVA [Suspect]
     Indication: OSTEOPOROSIS
     Route: 048
     Dates: start: 20090301, end: 20090501

REACTIONS (7)
  - ANXIETY [None]
  - HAND REPAIR OPERATION [None]
  - INSOMNIA [None]
  - NERVOUSNESS [None]
  - PRURITUS [None]
  - TINNITUS [None]
  - VARICOSE VEIN [None]
